FAERS Safety Report 9057823 (Version 1)
Quarter: 2013Q1

REPORT INFORMATION
  Report Type: Spontaneous
  Country: US (occurrence: None)
  Receive Date: 20130204
  Receipt Date: 20130204
  Transmission Date: 20140127
  Serious: Yes (Hospitalization)
  Sender: FDA-Public Use
  Company Number: None

PATIENT
  Age: 81 Year
  Sex: Female

DRUGS (1)
  1. RANOLAZINE [Suspect]
     Route: 048

REACTIONS (13)
  - Confusional state [None]
  - Aphasia [None]
  - Urinary tract infection [None]
  - Neurological symptom [None]
  - Dehydration [None]
  - Blood creatinine increased [None]
  - Renal impairment [None]
  - Dysarthria [None]
  - Cerebellar syndrome [None]
  - Tremor [None]
  - Hallucination [None]
  - Central nervous system lesion [None]
  - Ataxia [None]
